FAERS Safety Report 11295866 (Version 2)
Quarter: 2015Q3

REPORT INFORMATION
  Report Type: Spontaneous
  Country: US (occurrence: US)
  Receive Date: 20150722
  Receipt Date: 20150916
  Transmission Date: 20151125
  Serious: No
  Sender: FDA-Public Use
  Company Number: US-ELI_LILLY_AND_COMPANY-USA0510110693

PATIENT
  Age: 74 Year
  Sex: Female
  Weight: 65.91 kg

DRUGS (6)
  1. STINGING NETTLE [Concomitant]
     Active Substance: HERBALS
     Dosage: UNK, UNKNOWN
  2. FORTEO [Suspect]
     Active Substance: TERIPARATIDE
     Indication: OSTEOPOROSIS
     Dosage: 20 UG, DAILY (1/D)
     Route: 058
     Dates: start: 20050601, end: 20051001
  3. ANTIOXIDANT SUPPLEMENT [Concomitant]
     Dosage: UNK, UNKNOWN
  4. FORTEO [Suspect]
     Active Substance: TERIPARATIDE
     Dosage: 20 UG, QOD
     Dates: start: 20051008
  5. CALTRATE [Concomitant]
     Active Substance: CALCIUM CARBONATE
     Dosage: 1 UNK, DAILY (1/D)
     Dates: end: 20050815
  6. EVISTA [Suspect]
     Active Substance: RALOXIFENE HYDROCHLORIDE
     Dates: start: 200611

REACTIONS (14)
  - Muscle spasms [Recovered/Resolved]
  - Back pain [Recovered/Resolved]
  - Neuropathy peripheral [Unknown]
  - Protein total abnormal [Unknown]
  - Muscle spasms [Not Recovered/Not Resolved]
  - Sinus disorder [Unknown]
  - Osteopenia [Unknown]
  - Hypoaesthesia [Not Recovered/Not Resolved]
  - Pain in extremity [Recovered/Resolved]
  - Balance disorder [Not Recovered/Not Resolved]
  - Muscle spasms [Not Recovered/Not Resolved]
  - Paraesthesia [Recovered/Resolved]
  - Pain [Unknown]
  - Coccydynia [Recovering/Resolving]

NARRATIVE: CASE EVENT DATE: 20050628
